FAERS Safety Report 8902150 (Version 1)
Quarter: 2012Q4

REPORT INFORMATION
  Report Type: 
  Country: BR (occurrence: BR)
  Receive Date: 20121112
  Receipt Date: 20121112
  Transmission Date: 20130627
  Serious: Yes (Other)
  Sender: FDA-Public Use
  Company Number: PHHY2012BR103949

PATIENT
  Sex: Male
  Weight: 20 kg

DRUGS (1)
  1. TRILEPTAL [Suspect]
     Dosage: 2 ml, UNK

REACTIONS (1)
  - Epilepsy [Unknown]
